FAERS Safety Report 8798149 (Version 2)
Quarter: 2015Q1

REPORT INFORMATION
  Report Type: Report from Study
  Country: US (occurrence: US)
  Receive Date: 20120920
  Receipt Date: 20150309
  Transmission Date: 20150721
  Serious: Yes (Death)
  Sender: FDA-Public Use
  Company Number: US-ROCHE-1104039

PATIENT
  Age: 78 Year
  Sex: Female

DRUGS (4)
  1. CPT-11 [Concomitant]
     Active Substance: IRINOTECAN
  2. DECADRON [Concomitant]
     Active Substance: DEXAMETHASONE
     Route: 065
  3. CARBOPLATIN. [Concomitant]
     Active Substance: CARBOPLATIN
  4. AVASTIN [Suspect]
     Active Substance: BEVACIZUMAB
     Indication: BRAIN NEOPLASM MALIGNANT
     Route: 065

REACTIONS (6)
  - Hemiparesis [Unknown]
  - Off label use [Unknown]
  - Seizure [Unknown]
  - Death [Fatal]
  - Disease progression [Unknown]
  - Aphasia [Unknown]

NARRATIVE: CASE EVENT DATE: 20090213
